FAERS Safety Report 9862314 (Version 1)
Quarter: 2014Q1

REPORT INFORMATION
  Report Type: Spontaneous
  Country: US (occurrence: US)
  Receive Date: 20140203
  Receipt Date: 20140203
  Transmission Date: 20141002
  Serious: No
  Sender: FDA-Public Use
  Company Number: US-OPTIMER-20130434

PATIENT
  Age: 66 Year
  Sex: Female
  Weight: 102.4 kg

DRUGS (9)
  1. DIFICID [Suspect]
     Indication: CLOSTRIDIUM DIFFICILE COLITIS
     Dosage: 200 MG, BID
     Route: 048
     Dates: start: 20131021
  2. PRAVASTATIN [Concomitant]
     Indication: BLOOD CHOLESTEROL INCREASED
     Dosage: UNK
     Route: 065
  3. TOPAMAX [Concomitant]
     Indication: CONVULSION
     Dosage: UNK
     Route: 065
  4. TEGRETOL [Concomitant]
     Indication: CONVULSION
     Dosage: UNK
     Route: 065
  5. KEPPRA [Concomitant]
     Indication: CONVULSION
     Dosage: UNK
     Route: 065
  6. SYNTHROID [Concomitant]
     Indication: HYPOTHYROIDISM
     Dosage: UNK
     Route: 065
  7. ZOLOFT [Concomitant]
     Dosage: UNK
     Route: 065
  8. IRON SULFATE [Concomitant]
     Dosage: UNK
     Route: 065
  9. FOLIC ACID [Concomitant]
     Dosage: UNK
     Route: 065

REACTIONS (2)
  - Diarrhoea [Not Recovered/Not Resolved]
  - Mucous stools [Not Recovered/Not Resolved]
